FAERS Safety Report 5375478-X (Version None)
Quarter: 2007Q2

REPORT INFORMATION
  Report Type: 
  Country: None (occurrence: None)
  Receive Date: 20070629
  Receipt Date: 20070615
  Transmission Date: 20071010
  Serious: Yes (Other)
  Sender: FDA-Public Use
  Company Number: US-SHR-US-2007-013220

PATIENT
  Age: 62 Year
  Sex: Male
  Weight: 74 kg

DRUGS (46)
  1. MAGNEVIST [Suspect]
     Dosage: 20 ML, 1 DOSE
     Route: 042
     Dates: start: 20020903, end: 20020903
  2. MAGNEVIST [Suspect]
     Dosage: 20 ML, 1 DOSE
     Route: 042
     Dates: start: 20030805, end: 20030805
  3. MAGNEVIST [Suspect]
     Dosage: 20 ML, 1 DOSE
     Route: 042
     Dates: start: 20040809, end: 20040809
  4. MAGNEVIST [Suspect]
     Dosage: 40 ML, 2 DOSES
     Route: 042
     Dates: start: 20051108, end: 20051108
  5. MAGNEVIST [Suspect]
     Dosage: 20 ML, 2 DOSE
     Route: 042
     Dates: start: 20060402, end: 20060402
  6. MAGNEVIST [Suspect]
     Dosage: 60 ML, 1 DOSE
     Route: 042
     Dates: start: 20060721, end: 20060721
  7. MAGNEVIST [Suspect]
     Dosage: 20 ML, 2 DOSES
     Route: 042
     Dates: start: 20070302, end: 20070302
  8. ISOVUE-128 [Concomitant]
     Dosage: 50 ML, 1 DOSE
     Route: 042
     Dates: start: 20070319, end: 20070319
  9. ISOVUE-128 [Concomitant]
     Dosage: 10 ML, 1 DOSE
     Route: 042
     Dates: start: 20070306, end: 20070306
  10. ULTRAVIST (PHARMACY BULK) [Concomitant]
     Dosage: UNK, 1 DOSE
     Dates: start: 20060407, end: 20060407
  11. ULTRAVIST (PHARMACY BULK) [Concomitant]
     Dosage: UNK, 1 DOSE
     Dates: start: 20060412, end: 20060412
  12. XENON (133 XE) [Concomitant]
     Dosage: 562 MBQ, 1 DOSE
     Dates: start: 20021006, end: 20021006
  13. TECHNETIUM (99M TC) SESTAMIBI [Concomitant]
     Dosage: 403 MBQ, 1 DOSE
     Route: 042
     Dates: start: 20070228, end: 20070228
  14. TECHNETIUM (99M TC) SESTAMIBI [Concomitant]
     Dosage: 1164 MBQ, 1 DOSE
     Dates: start: 20070228, end: 20070228
  15. TECHNETIUM (99M TC) SESTAMIBI [Concomitant]
     Dosage: 369 MBQ, 1 DOSE
     Dates: start: 20060321, end: 20060321
  16. TECHNETIUM (99M TC) SESTAMIBI [Concomitant]
     Dosage: 1114 MBQ, 1 DOSE
     Dates: start: 20060321, end: 20060321
  17. TECHNETIUM (99M TC) SESTAMIBI [Concomitant]
     Dosage: 1121 MBQ, 1 DOSE
     Dates: start: 20021113, end: 20021113
  18. TECHNETIUM (99M TC) SESTAMIBI [Concomitant]
     Dosage: 400 MBQ, 1 DOSE
     Dates: start: 20021113, end: 20021113
  19. ADENOSINE [Concomitant]
     Dosage: UNK, 1 DOSE
     Dates: start: 20070228, end: 20070228
  20. ADENOSINE [Concomitant]
     Dosage: UNK, 1 DOSE
     Dates: start: 20060321, end: 20060321
  21. TECHNETIUM TC 99M ALBUMIN AGGREGATED [Concomitant]
     Dosage: 158 MBQ, 1 DOSE
     Dates: start: 20021006, end: 20021006
  22. MIDODRINE [Concomitant]
     Dosage: 10 MG, 3X/DAY
     Route: 048
  23. DIGOXIN [Concomitant]
     Dosage: .125 MG, QOD
     Route: 048
  24. PREDNISONE TAB [Concomitant]
     Dosage: 5 MG, 1X/DAY
     Route: 048
  25. LIDOCAINE [Concomitant]
     Dosage: PATCH
     Route: 061
  26. GABAPENTIN [Concomitant]
     Dosage: 100 MG, BED T.
     Route: 048
  27. SEROQUEL [Concomitant]
     Dosage: 12.5 MG, BED T.
     Route: 048
  28. DILAUDID [Concomitant]
     Dosage: UNK, AS REQ'D
     Route: 042
  29. PROGRAF [Concomitant]
     Dosage: 1 MG, 1X/DAY
     Route: 048
  30. NEXIUM [Concomitant]
     Dosage: 20 MG, 1X/DAY
     Route: 048
  31. PLAVIX [Concomitant]
     Dosage: 75 MG, 1X/DAY
     Route: 048
     Dates: start: 20060401
  32. ZETIA [Concomitant]
     Dosage: 10 MG, 1X/DAY
     Route: 048
  33. LOPRESSOR [Concomitant]
     Dosage: 75 MG, 1X/DAY
     Route: 048
  34. MINOXIDIL [Concomitant]
     Dosage: 5 MG, 1X/DAY
     Route: 048
  35. ISOSORBIDE DINITRATE [Concomitant]
     Dosage: 40 MG, 3X/DAY
     Route: 048
  36. ACTIGALL [Concomitant]
     Dosage: 300 MG, 3X/DAY
     Route: 048
  37. REGLAN [Concomitant]
     Dosage: 10 MG, 2X/DAY
     Route: 048
  38. LASIX [Concomitant]
     Dosage: 80 MG, 2X/DAY
     Route: 048
  39. ARANESP [Concomitant]
     Dosage: 25 MG, 1X/WEEK
     Route: 048
  40. WELLBUTRIN [Concomitant]
     Dosage: 100 MG, BED T.
     Route: 048
  41. IMURAN [Concomitant]
     Dosage: 75 MG, BED T.
     Route: 048
  42. CLONIDINE [Concomitant]
     Dosage: .3 MG, 1X/WEEK
     Route: 048
  43. HUMULIN N [Concomitant]
     Dosage: 18 UNITS, BEFORE DINNER
     Route: 058
  44. HUMULIN N [Concomitant]
     Dosage: 7 UNITS, BEFORE BREAKFAST
     Route: 058
  45. RITUXIMAB [Concomitant]
     Indication: TRANSPLANT REJECTION
     Dosage: UNK, 1X/WEEK
     Dates: start: 20060621, end: 20060701
  46. RIBAVIRIN [Concomitant]

REACTIONS (1)
  - NEPHROGENIC FIBROSING DERMOPATHY [None]
